FAERS Safety Report 4933414-1 (Version None)
Quarter: 2006Q1

REPORT INFORMATION
  Report Type: 
  Country: None (occurrence: None)
  Receive Date: 20060306
  Receipt Date: 20051212
  Transmission Date: 20060701
  Serious: Yes (Other)
  Sender: FDA-Public Use
  Company Number: US-GLAXOSMITHKLINE-A0585509A

PATIENT
  Age: 62 Year
  Sex: Female

DRUGS (4)
  1. ADVAIR DISKUS 100/50 [Suspect]
     Indication: ASTHMA
     Dosage: 1PUFF TWICE PER DAY
     Route: 055
     Dates: start: 20011009
  2. HYOSCYAMINE [Concomitant]
  3. NORVASC [Concomitant]
  4. EFFEXOR [Concomitant]

REACTIONS (3)
  - ASTHMA [None]
  - CATARACT NUCLEAR [None]
  - VISUAL DISTURBANCE [None]
